FAERS Safety Report 22028293 (Version 1)
Quarter: 2023Q1

REPORT INFORMATION
  Report Type: Spontaneous
  Country: US (occurrence: US)
  Receive Date: 20230223
  Receipt Date: 20230223
  Transmission Date: 20230417
  Serious: No
  Sender: FDA-Public Use
  Company Number: US-Merz Pharmaceuticals GmbH-23-00322

PATIENT
  Age: 54 Year
  Sex: Female

DRUGS (5)
  1. XEOMIN [Suspect]
     Active Substance: INCOBOTULINUMTOXINA
     Indication: Skin wrinkling
     Dates: start: 20230203, end: 20230203
  2. BOTOX [Concomitant]
     Active Substance: ONABOTULINUMTOXINA
  3. LORAZEPAM [Concomitant]
     Active Substance: LORAZEPAM
  4. TYRVAYA [Concomitant]
     Active Substance: VARENICLINE TARTRATE
  5. ZOLOFT [Concomitant]
     Active Substance: SERTRALINE HYDROCHLORIDE

REACTIONS (3)
  - Rash pruritic [Recovering/Resolving]
  - Product preparation issue [Unknown]
  - Overdose [Unknown]

NARRATIVE: CASE EVENT DATE: 20230203
